FAERS Safety Report 8876717 (Version 3)
Quarter: 2012Q4

REPORT INFORMATION
  Report Type: 
  Country: CO (occurrence: CO)
  Receive Date: 20121029
  Receipt Date: 20121119
  Transmission Date: 20130627
  Serious: Yes (Hospitalization, Other)
  Sender: FDA-Public Use
  Company Number: CO-PFIZER INC-2012266995

PATIENT
  Age: 15 Year
  Sex: Male

DRUGS (4)
  1. GENOTROPIN [Suspect]
     Indication: STATURE SHORT
     Dosage: 1.4 mg, 1x/day (every night at 8pm)
     Route: 058
     Dates: start: 201207, end: 20121016
  2. GENOTROPIN [Suspect]
     Indication: UNDERWEIGHT
  3. GENOTROPIN [Suspect]
     Indication: DEVELOPMENTAL DELAY
  4. GAMMA GLOBULIN [Concomitant]
     Indication: PRIMARY IMMUNODEFICIENCY SYNDROME
     Dosage: one injection every month
     Dates: start: 201203

REACTIONS (6)
  - Asthenia [Not Recovered/Not Resolved]
  - Pulmonary haemorrhage [Not Recovered/Not Resolved]
  - Peritonitis [Not Recovered/Not Resolved]
  - Polyp [Not Recovered/Not Resolved]
  - Gastrointestinal disorder [Not Recovered/Not Resolved]
  - Off label use [Unknown]
